FAERS Safety Report 5124473-4 (Version None)
Quarter: 2006Q4

REPORT INFORMATION
  Report Type: 
  Country: None (occurrence: None)
  Receive Date: 20061006
  Receipt Date: 20061003
  Transmission Date: 20070319
  Serious: Yes (Disabling)
  Sender: FDA-Public Use
  Company Number: B0440917A

PATIENT
  Age: 58 Year
  Sex: Male

DRUGS (1)
  1. ZYBAN [Suspect]
     Indication: EX-SMOKER
     Dosage: ORAL
     Route: 048
     Dates: start: 20060918, end: 20060923

REACTIONS (4)
  - DEPRESSION [None]
  - EAR DISCOMFORT [None]
  - HEARING IMPAIRED [None]
  - TINNITUS [None]
